FAERS Safety Report 5820974-1 (Version None)
Quarter: 2008Q3

REPORT INFORMATION
  Report Type: 
  Country: None (occurrence: None)
  Receive Date: 20080724
  Receipt Date: 20080715
  Transmission Date: 20090109
  Serious: Yes (Hospitalization)
  Sender: FDA-Public Use
  Company Number: ES-AVENTIS-200813651EU

PATIENT
  Age: 81 Year
  Sex: Male

DRUGS (6)
  1. FUROSEMIDE [Suspect]
     Route: 048
     Dates: end: 20080405
  2. ENALAPRIL MALEATE [Suspect]
     Indication: HYPERTENSION
     Dosage: DOSE: UNK
     Route: 048
     Dates: end: 20080403
  3. CASODEX 50 [Concomitant]
     Route: 048
     Dates: end: 20080403
  4. NITRODERM [Concomitant]
     Route: 062
     Dates: end: 20080403
  5. SINTROM [Concomitant]
     Indication: ATRIAL FIBRILLATION
     Dosage: DOSE: UNK
     Route: 048
     Dates: end: 20080403
  6. TRANGOREX [Concomitant]
     Indication: ATRIAL FIBRILLATION
     Route: 048
     Dates: end: 20080403

REACTIONS (2)
  - DRUG INTERACTION [None]
  - RENAL FAILURE ACUTE [None]
